FAERS Safety Report 15832229 (Version 1)
Quarter: 2019Q1

REPORT INFORMATION
  Report Type: Spontaneous
  Country: US (occurrence: US)
  Receive Date: 20190116
  Receipt Date: 20190116
  Transmission Date: 20190417
  Serious: Yes (Death, Other)
  Sender: FDA-Public Use
  Company Number: US-HQ SPECIALTY-US-2019INT000007

PATIENT

DRUGS (1)
  1. MAGNESIUM SULFATE IN DEXTROSE [Suspect]
     Active Substance: MAGNESIUM SULFATE
     Indication: WEIGHT CONTROL
     Dosage: UNK
     Route: 048

REACTIONS (8)
  - Hypermagnesaemia [Fatal]
  - Electrocardiogram QT prolonged [Fatal]
  - Brain hypoxia [Fatal]
  - Accidental overdose [Fatal]
  - Cardiac arrest [Fatal]
  - Lactic acidosis [Fatal]
  - Encephalopathy [Fatal]
  - Brain injury [Fatal]

NARRATIVE: CASE EVENT DATE: 201708
